FAERS Safety Report 12573357 (Version 1)
Quarter: 2016Q3

REPORT INFORMATION
  Report Type: Spontaneous
  Country: US (occurrence: None)
  Receive Date: 20160719
  Receipt Date: 20160719
  Transmission Date: 20161109
  Serious: Yes (Hospitalization)
  Sender: FDA-Public Use
  Company Number: None

PATIENT
  Age: 54 Year
  Sex: Female

DRUGS (1)
  1. IBRANCE [Suspect]
     Active Substance: PALBOCICLIB
     Indication: BREAST CANCER FEMALE
     Dosage: IBRANCE 125MG  CAP, ONE TAKE ONE CAPSULE PO
     Route: 048
     Dates: start: 20160513

REACTIONS (2)
  - Oedema [None]
  - Rash [None]

NARRATIVE: CASE EVENT DATE: 20160624
